FAERS Safety Report 15787228 (Version 3)
Quarter: 2019Q2

REPORT INFORMATION
  Report Type: Spontaneous
  Country: US (occurrence: US)
  Receive Date: 20190103
  Receipt Date: 20190515
  Transmission Date: 20190711
  Serious: Yes (Life-Threatening, Hospitalization, Disabling)
  Sender: FDA-Public Use
  Company Number: US-AMREGENT-20182439

PATIENT
  Age: 31 Year
  Sex: Female
  Weight: 78.02 kg

DRUGS (14)
  1. TYLENOL [Concomitant]
     Active Substance: ACETAMINOPHEN
     Dosage: 650 MG, 30 MIN BEFORE INFUSION
     Route: 048
     Dates: start: 20161025, end: 20161025
  2. MESTINON [Concomitant]
     Active Substance: PYRIDOSTIGMINE BROMIDE
     Dosage: 60 MG FOUR TIMES A DAY
     Route: 048
     Dates: end: 20161118
  3. NUVARING [Concomitant]
     Active Substance: ETHINYL ESTRADIOL\ETONOGESTREL
     Dosage: LEAVE IN PLACE FOR 3 WEEKS
     Route: 067
     Dates: start: 20160620, end: 20161118
  4. BACTROBAN [Concomitant]
     Active Substance: MUPIROCIN\MUPIROCIN CALCIUM
     Dosage: 2% TOPICAL OINTMENT
     Route: 061
     Dates: end: 20161118
  5. FERROUS SULFATE. [Concomitant]
     Active Substance: FERROUS SULFATE
     Dosage: 3 TABLETS DAILY WITH BREAKFAST
     Route: 048
     Dates: end: 20161118
  6. GAMUNEX-C [Concomitant]
     Active Substance: HUMAN IMMUNOGLOBULIN G
     Dosage: 1 DOSE OF 60 G (EVERY 2 WEEKS)
     Route: 042
     Dates: start: 20161011, end: 20161011
  7. MICRO-K [Concomitant]
     Active Substance: POTASSIUM CHLORIDE
     Dosage: 10 MEQ DAILY
     Route: 048
     Dates: end: 20161118
  8. BENADRYL [Concomitant]
     Active Substance: DIPHENHYDRAMINE HYDROCHLORIDE
     Dosage: 25 MG EVERY 6 HOURS AS NEEDED
     Route: 042
     Dates: start: 20161011, end: 20161011
  9. TYLENOL WITH CODEINE [Concomitant]
     Active Substance: ACETAMINOPHEN\CODEINE PHOSPHATE
     Dosage: 1 EVERY 6 HOURS AS NEEDED X10D
     Route: 048
     Dates: start: 20160818, end: 20170722
  10. DELTASONE [Concomitant]
     Active Substance: PREDNISONE
     Dosage: 25 MG DAILY
     Route: 048
     Dates: end: 20161118
  11. NEORAL [Concomitant]
     Active Substance: CYCLOSPORINE
     Dosage: 100 MG TWO TIMES A DAY
     Route: 048
     Dates: start: 20161013, end: 20161115
  12. METHOTREXATE. [Concomitant]
     Active Substance: METHOTREXATE
     Dosage: 1 TABLET DAILY
     Route: 048
     Dates: end: 20161118
  13. INJECTAFER [Suspect]
     Active Substance: FERRIC CARBOXYMALTOSE
     Dosage: UNKNOWN
     Route: 051
     Dates: start: 20161020, end: 20161020
  14. WELLBUTRIN XL [Concomitant]
     Active Substance: BUPROPION HYDROCHLORIDE
     Dosage: 1 TAB (150 MG TOTAL) DAILY
     Route: 048
     Dates: start: 20160620, end: 20161118

REACTIONS (6)
  - Hypophosphataemia [Recovered/Resolved with Sequelae]
  - Emotional distress [Not Recovered/Not Resolved]
  - Product quality issue [Unknown]
  - Anxiety [Not Recovered/Not Resolved]
  - Anhedonia [Not Recovered/Not Resolved]
  - Pain [Recovered/Resolved with Sequelae]

NARRATIVE: CASE EVENT DATE: 2016
